FAERS Safety Report 7286523-9 (Version None)
Quarter: 2011Q1

REPORT INFORMATION
  Report Type: 
  Country: None (occurrence: None)
  Receive Date: 20110210
  Receipt Date: 20110203
  Transmission Date: 20110831
  Serious: Yes (Other)
  Sender: FDA-Public Use
  Company Number: DE-PFIZER INC-2011025453

PATIENT
  Age: 68 Year
  Sex: Female

DRUGS (1)
  1. AROMASIN [Suspect]
     Indication: BREAST CANCER METASTATIC
     Dosage: 25 MG, DAILY

REACTIONS (4)
  - METASTASES TO CENTRAL NERVOUS SYSTEM [None]
  - NERVOUS SYSTEM DISORDER [None]
  - DISORIENTATION [None]
  - CONFUSIONAL STATE [None]
